FAERS Safety Report 8166910-7 (Version None)
Quarter: 2012Q1

REPORT INFORMATION
  Report Type: 
  Country: None (occurrence: None)
  Receive Date: 20120227
  Receipt Date: 20120217
  Transmission Date: 20120608
  Serious: Yes (Hospitalization, Other)
  Sender: FDA-Public Use
  Company Number: US-BAYER-2011-063032

PATIENT
  Age: 37 Year
  Sex: Female
  Weight: 92.971 kg

DRUGS (4)
  1. LEXAPRO [Concomitant]
     Indication: DEPRESSION
     Dosage: UNK
     Dates: start: 20050501, end: 20080901
  2. YAZ [Suspect]
     Indication: ACNE
     Dosage: UNK
     Dates: start: 20071105, end: 20080920
  3. YASMIN [Suspect]
     Indication: ACNE
     Dosage: UNK
     Dates: start: 20070305, end: 20071105
  4. LEXAPRO [Concomitant]
     Indication: ANXIETY

REACTIONS (6)
  - CORONARY ARTERY DISSECTION [None]
  - ARRHYTHMIA [None]
  - THROMBOPHLEBITIS SUPERFICIAL [None]
  - CARDIAC ARREST [None]
  - PAIN [None]
  - MYOCARDIAL INFARCTION [None]
